FAERS Safety Report 16688307 (Version 2)
Quarter: 2019Q3

REPORT INFORMATION
  Report Type: Spontaneous
  Country: DE (occurrence: DE)
  Receive Date: 20190809
  Receipt Date: 20190815
  Transmission Date: 20191004
  Serious: Yes (Other)
  Sender: FDA-Public Use
  Company Number: DE-PFIZER INC-2019335974

PATIENT
  Age: 44 Year
  Sex: Male

DRUGS (5)
  1. FILGRASTIM [Suspect]
     Active Substance: FILGRASTIM
     Indication: PSEUDOMONAS INFECTION
  2. FILGRASTIM [Suspect]
     Active Substance: FILGRASTIM
     Indication: SUBCUTANEOUS ABSCESS
     Dosage: 7.4 MICROGRAM/KILOGRAM, QD
     Route: 058
  3. FILGRASTIM [Suspect]
     Active Substance: FILGRASTIM
     Indication: NEUTROPENIA
  4. FILGRASTIM [Suspect]
     Active Substance: FILGRASTIM
     Indication: ENTEROBACTER INFECTION
  5. PREDNISOLONE. [Concomitant]
     Active Substance: PREDNISOLONE
     Indication: SYSTEMIC LUPUS ERYTHEMATOSUS
     Dosage: 7.5 MILLIGRAM, QD
     Route: 048

REACTIONS (3)
  - Hypersensitivity vasculitis [Recovered/Resolved]
  - Product use in unapproved indication [Unknown]
  - Off label use [Unknown]
